FAERS Safety Report 10461051 (Version 1)
Quarter: 2014Q3

REPORT INFORMATION
  Report Type: Spontaneous
  Country: CA (occurrence: None)
  Receive Date: 20140829
  Receipt Date: 20140829
  Transmission Date: 20150326
  Serious: Yes (Hospitalization)
  Sender: FDA-Public Use
  Company Number: GTI002496

PATIENT
  Age: 34 Year
  Sex: Female
  Weight: 62.4 kg

DRUGS (8)
  1. ECULIZUMAB [Concomitant]
     Active Substance: ECULIZUMAB
  2. GAMUNEX [Suspect]
     Active Substance: HUMAN IMMUNOGLOBULIN G
     Indication: SUBDURAL HAEMATOMA
     Route: 042
     Dates: start: 20140704
  3. GAMUNEX [Suspect]
     Active Substance: HUMAN IMMUNOGLOBULIN G
     Route: 042
     Dates: start: 20140704
  4. MEDROL [Concomitant]
     Active Substance: METHYLPREDNISOLONE
  5. GAMUNEX [Suspect]
     Active Substance: HUMAN IMMUNOGLOBULIN G
     Indication: THROMBOCYTOPENIA
     Route: 042
     Dates: start: 20140704
  6. VINCRISTINE [Concomitant]
     Active Substance: VINCRISTINE
  7. RITUXAN [Concomitant]
     Active Substance: RITUXIMAB
  8. PREDNISONE. [Concomitant]
     Active Substance: PREDNISONE

REACTIONS (7)
  - Thrombocytopenia [None]
  - Intracranial venous sinus thrombosis [None]
  - Blindness [None]
  - Sepsis [None]
  - Exophthalmos [None]
  - Disease progression [None]
  - VIth nerve paralysis [None]

NARRATIVE: CASE EVENT DATE: 20140704
